FAERS Safety Report 12920799 (Version 1)
Quarter: 2016Q4

REPORT INFORMATION
  Report Type: Spontaneous
  Country: US (occurrence: US)
  Receive Date: 20161105
  Receipt Date: 20161105
  Transmission Date: 20170207
  Serious: No
  Sender: FDA-Public Use
  Company Number: None

PATIENT
  Sex: Female
  Weight: 131.66 kg

DRUGS (1)
  1. COSENTYX [Suspect]
     Active Substance: SECUKINUMAB
     Indication: PSORIATIC ARTHROPATHY
     Dosage: COSENTYX 150MG Q4WEEKS SUBCUTANEOUSLY
     Route: 058
     Dates: start: 201610

REACTIONS (2)
  - Inappropriate schedule of drug administration [None]
  - Drug prescribing error [None]
